FAERS Safety Report 6784154-8 (Version None)
Quarter: 2010Q2

REPORT INFORMATION
  Report Type: 
  Country: None (occurrence: None)
  Receive Date: 20100617
  Receipt Date: 20100601
  Transmission Date: 20101027
  Serious: Yes (Hospitalization)
  Sender: FDA-Public Use
  Company Number: 2010002281

PATIENT
  Age: 55 Year
  Sex: Male

DRUGS (7)
  1. ERLOTINIB (ERLOTINIB) (TABLET) (ERLOTINIB) [Suspect]
     Indication: NON-SMALL CELL LUNG CANCER
     Dosage: 150 MG, QD, ORAL
     Route: 048
     Dates: start: 20100326
  2. BEVACIZUMAB [Suspect]
     Indication: NON-SMALL CELL LUNG CANCER
     Dosage: 15 MG/KG, Q3W, INTRAVENOUS
     Route: 042
     Dates: start: 20100326
  3. 3' - DEOXY-3' - [18F] FLOUROTHYMIDINE [Suspect]
     Indication: NON-SMALL CELL LUNG CANCER
     Dosage: INTRAVENOUS
     Route: 042
     Dates: start: 20100324
  4. FLUORODEOXYGLUCOSE F18 [Suspect]
     Indication: NON-SMALL CELL LUNG CANCER
     Dosage: INTRAVENOUS
     Route: 042
     Dates: start: 20100326
  5. GADOPENTETIC ACID (GADOPENTETIC ACID) [Suspect]
     Indication: NON-SMALL CELL LUNG CANCER
     Dosage: 10 ML, INTRAVENOUS
     Route: 042
     Dates: start: 20100325
  6. BISOPROLOL FUMARATE [Concomitant]
  7. PANTOPRAZOLE SODIUM [Concomitant]

REACTIONS (9)
  - ARTHRALGIA [None]
  - HYPERTENSIVE CRISIS [None]
  - NAUSEA [None]
  - OEDEMA PERIPHERAL [None]
  - PERFORMANCE STATUS DECREASED [None]
  - PNEUMONIA [None]
  - PURPURA [None]
  - VASCULITIS [None]
  - VOMITING [None]
